FAERS Safety Report 8563927-5 (Version None)
Quarter: 2012Q3

REPORT INFORMATION
  Report Type: 
  Country: None (occurrence: None)
  Receive Date: 20120717
  Receipt Date: 20120703
  Transmission Date: 20120928
  Serious: Yes (Hospitalization, Other)
  Sender: FDA-Public Use
  Company Number: 2012PROUSA01613

PATIENT
  Age: 71 Year
  Sex: Male
  Weight: 78.5 kg

DRUGS (5)
  1. PROVENGE [Suspect]
     Indication: PROSTATE CANCER METASTATIC
     Dosage: 250 ML, UNK, INTRAVENOUS
     Route: 042
     Dates: start: 20120702, end: 20120702
  2. PROVENGE [Suspect]
     Indication: PROSTATE CANCER METASTATIC
     Dosage: 250 ML, UNK, INTRAVENOUS
     Route: 042
     Dates: start: 20120618, end: 20120618
  3. METFORMIN HYDROCHLORIDE [Concomitant]
  4. ENALAPRIL MALEATE [Concomitant]
  5. PROVENGE [Suspect]
     Indication: PROSTATE CANCER METASTATIC
     Dosage: 250 MK,UNK, INTRAVENOUS
     Route: 042
     Dates: start: 20120702, end: 20120702

REACTIONS (7)
  - WHEEZING [None]
  - DYSPNOEA [None]
  - PYREXIA [None]
  - INFUSION RELATED REACTION [None]
  - CHILLS [None]
  - RASH GENERALISED [None]
  - MYOCARDIAL INFARCTION [None]
